FAERS Safety Report 8796165 (Version 1)
Quarter: 2012Q4

REPORT INFORMATION
  Report Type: 
  Country: CH (occurrence: CH)
  Receive Date: 20120919
  Receipt Date: 20120919
  Transmission Date: 20130627
  Serious: Yes (Life-Threatening, Hospitalization)
  Sender: FDA-Public Use
  Company Number: CH-BRISTOL-MYERS SQUIBB COMPANY-16955189

PATIENT
  Age: 60 Year
  Sex: Male
  Weight: 74 kg

DRUGS (3)
  1. ERBITUX SOLN FOR INF [Suspect]
     Indication: TONGUE NEOPLASM MALIGNANT STAGE UNSPECIFIED
     Dosage: dosage strength:400mg/sq meters
     Route: 042
     Dates: start: 20120711, end: 20120711
  2. BELOC-ZOK [Concomitant]
     Indication: HYPERTENSIVE HEART DISEASE
     Route: 048
  3. MARCOUMAR [Concomitant]
     Indication: ATRIAL FIBRILLATION
     Route: 048

REACTIONS (8)
  - Hypersensitivity [Recovered/Resolved]
  - Convulsion [Recovered/Resolved]
  - Hypotension [Recovered/Resolved]
  - Paraesthesia [Recovered/Resolved]
  - Rash [Recovered/Resolved]
  - Dermatitis exfoliative [Recovered/Resolved]
  - Feeling hot [Recovered/Resolved]
  - Drug prescribing error [Recovered/Resolved]
